FAERS Safety Report 4637796-X (Version None)
Quarter: 2005Q2

REPORT INFORMATION
  Report Type: 
  Country: None (occurrence: None)
  Receive Date: 20050328
  Receipt Date: 20050203
  Transmission Date: 20051028
  Serious: No
  Sender: FDA-Public Use
  Company Number: USA050290150

PATIENT
  Age: 5 Year
  Sex: Male
  Weight: 28 kg

DRUGS (4)
  1. STRATTERA [Suspect]
     Indication: ATTENTION DEFICIT/HYPERACTIVITY DISORDER
     Dosage: 43 MG DAY
  2. SINGULAIR (MONTELUKAST) [Concomitant]
  3. FLOVENT [Concomitant]
  4. ALBUTEROL [Concomitant]

REACTIONS (2)
  - PRESCRIBED OVERDOSE [None]
  - VOMITING [None]
